FAERS Safety Report 10520331 (Version 1)
Quarter: 2014Q4

REPORT INFORMATION
  Report Type: Spontaneous
  Country: US (occurrence: US)
  Receive Date: 20141015
  Receipt Date: 20141015
  Transmission Date: 20150528
  Serious: No
  Sender: FDA-Public Use
  Company Number: US-GLAXOSMITHKLINE-US2014GSK002905

PATIENT
  Sex: Male

DRUGS (7)
  1. OINTMENT [Concomitant]
     Active Substance: UNSPECIFIED INGREDIENT
  2. VOTRIENT [Suspect]
     Active Substance: PAZOPANIB HYDROCHLORIDE
     Indication: LUNG NEOPLASM
     Dosage: 800 MG, U
     Route: 048
     Dates: start: 201407
  3. COUGH SYRUP WITH CODEINE (UNKNOWN) [Concomitant]
  4. ANTI-ANXIETY {UNKNOWN MEDICATION} [Concomitant]
  5. OXYCODONE [Concomitant]
     Active Substance: OXYCODONE
  6. AMLODIPINE [Concomitant]
     Active Substance: AMLODIPINE BESYLATE
  7. VOTRIENT [Suspect]
     Active Substance: PAZOPANIB HYDROCHLORIDE
     Indication: RENAL CANCER

REACTIONS (11)
  - Hair colour changes [Not Recovered/Not Resolved]
  - Bone pain [Unknown]
  - Pallor [Not Recovered/Not Resolved]
  - Alopecia [Not Recovered/Not Resolved]
  - Blister [Not Recovered/Not Resolved]
  - Diarrhoea [Not Recovered/Not Resolved]
  - Anxiety [Not Recovered/Not Resolved]
  - Dehydration [Unknown]
  - Chest pain [Recovered/Resolved]
  - Abdominal pain lower [Not Recovered/Not Resolved]
  - Headache [Not Recovered/Not Resolved]

NARRATIVE: CASE EVENT DATE: 2014
